FAERS Safety Report 7824105-8 (Version None)
Quarter: 2011Q4

REPORT INFORMATION
  Report Type: 
  Country: None (occurrence: None)
  Receive Date: 20111019
  Receipt Date: 20111014
  Transmission Date: 20120403
  Serious: Yes (Death)
  Sender: FDA-Public Use
  Company Number: PHEH2011US05016

PATIENT
  Sex: Male
  Weight: 58.957 kg

DRUGS (1)
  1. EXJADE [Suspect]
     Indication: MYELODYSPLASTIC SYNDROME
     Dosage: 1250 MG, DAILY
     Route: 048
     Dates: start: 20110917

REACTIONS (2)
  - DIARRHOEA [None]
  - DEATH [None]
